FAERS Safety Report 24908768 (Version 2)
Quarter: 2025Q1

REPORT INFORMATION
  Report Type: Spontaneous
  Country: US (occurrence: US)
  Receive Date: 20250131
  Receipt Date: 20250207
  Transmission Date: 20250409
  Serious: Yes (Hospitalization, Other)
  Sender: GRAVITI PHARMACEUTICALS PRIVATE LIMITED
  Company Number: US-GRAVITIPHARMA-GRA-2501-US-LIT-0050

PATIENT
  Age: 14 Year
  Sex: Male
  Weight: 73 kg

DRUGS (3)
  1. BUPROPION HYDROCHLORIDE [Suspect]
     Active Substance: BUPROPION HYDROCHLORIDE
     Indication: Product used for unknown indication
     Route: 065
  2. BUPROPION HYDROCHLORIDE [Suspect]
     Active Substance: BUPROPION HYDROCHLORIDE
     Route: 065
  3. HYDROXYBUPROPION, (+/-)- [Concomitant]
     Active Substance: HYDROXYBUPROPION, (+/-)-
     Indication: Product used for unknown indication
     Route: 065

REACTIONS (3)
  - Status epilepticus [Recovered/Resolved]
  - Serotonin syndrome [Recovered/Resolved]
  - Overdose [Unknown]
